FAERS Safety Report 4517409-8 (Version None)
Quarter: 2004Q4

REPORT INFORMATION
  Report Type: 
  Country: None (occurrence: None)
  Receive Date: 20041022
  Receipt Date: 20040803
  Transmission Date: 20050328
  Serious: No
  Sender: FDA-Public Use
  Company Number: 800085

PATIENT
  Age: 44 Year
  Sex: Male
  Weight: 90.4 kg

DRUGS (4)
  1. EXTRANEAL [Suspect]
     Indication: PERITONEAL DIALYSIS
     Dosage: 14000 L; QD; INTRAPERITONEAL
     Route: 033
     Dates: start: 20030601
  2. NPH INSULIN [Concomitant]
  3. FUROSEMIDE [Concomitant]
  4. ASPIRIN C [Concomitant]

REACTIONS (2)
  - RASH VESICULAR [None]
  - SKIN DESQUAMATION [None]
